FAERS Safety Report 10089569 (Version 1)
Quarter: 2014Q2

REPORT INFORMATION
  Report Type: Spontaneous
  Country: FR (occurrence: FR)
  Receive Date: 20140421
  Receipt Date: 20140421
  Transmission Date: 20141212
  Serious: Yes (Hospitalization, Other)
  Sender: FDA-Public Use
  Company Number: FR-PFIZER INC-2014107389

PATIENT
  Age: 60 Year
  Sex: Male

DRUGS (8)
  1. DEPO-MEDROL [Suspect]
     Indication: BURKITT^S LYMPHOMA
     Dosage: 20 MG, SINGLE
     Dates: start: 20140313, end: 20140313
  2. METHOTREXATE MYLAN [Suspect]
     Indication: BURKITT^S LYMPHOMA
     Dosage: 15 MG, DAILY
     Route: 039
     Dates: start: 20140313, end: 20140313
  3. PREDNISONE [Suspect]
     Indication: BURKITT^S LYMPHOMA
     Dosage: 120 MG, UNK
     Dates: start: 20140312, end: 20140323
  4. VINCRISTINE HOSPIRA [Suspect]
     Indication: BURKITT^S LYMPHOMA
     Dosage: 2 MG, CYCLIC
     Route: 042
     Dates: start: 20140312, end: 20140319
  5. ENDOXAN [Suspect]
     Indication: BURKITT^S LYMPHOMA
     Dosage: 600 MG, CYCLIC
     Route: 042
     Dates: start: 20140312, end: 20140321
  6. NORVIR [Concomitant]
  7. PREZISTA [Concomitant]
  8. TRUVADA [Concomitant]

REACTIONS (1)
  - Renal failure acute [Recovering/Resolving]
